FAERS Safety Report 25136693 (Version 1)
Quarter: 2025Q1

REPORT INFORMATION
  Report Type: Spontaneous
  Country: DE (occurrence: DE)
  Receive Date: 20250328
  Receipt Date: 20250328
  Transmission Date: 20250409
  Serious: Yes (Hospitalization)
  Sender: NOVARTIS
  Company Number: DE-002147023-NVSC2025DE050976

PATIENT
  Age: 68 Year
  Sex: Female

DRUGS (1)
  1. ILARIS [Suspect]
     Active Substance: CANAKINUMAB
     Indication: Dressler^s syndrome
     Route: 065
     Dates: start: 20240815

REACTIONS (4)
  - General physical health deterioration [Recovering/Resolving]
  - Pleural effusion [Recovered/Resolved]
  - Inflammatory marker decreased [Recovered/Resolved]
  - Off label use [Unknown]

NARRATIVE: CASE EVENT DATE: 20240815
